FAERS Safety Report 9215369 (Version 1)
Quarter: 2013Q2

REPORT INFORMATION
  Report Type: Spontaneous
  Country: US (occurrence: US)
  Receive Date: 20130405
  Receipt Date: 20130405
  Transmission Date: 20140414
  Serious: No
  Sender: FDA-Public Use
  Company Number: US-009507513-1304USA001114

PATIENT
  Age: 52 Year
  Sex: Female

DRUGS (3)
  1. DULERA [Suspect]
     Indication: CHRONIC OBSTRUCTIVE PULMONARY DISEASE
     Dosage: 100MCG/5MCG, 2 PUFF, QD
     Route: 055
     Dates: start: 201212
  2. DULERA [Suspect]
     Indication: EMPHYSEMA
  3. PROAIR (ALBUTEROL SULFATE) [Concomitant]

REACTIONS (4)
  - Dysgeusia [Recovering/Resolving]
  - Drug ineffective [Unknown]
  - Dyspnoea [Recovering/Resolving]
  - Product quality issue [Unknown]
